FAERS Safety Report 7694447-8 (Version None)
Quarter: 2011Q3

REPORT INFORMATION
  Report Type: 
  Country: None (occurrence: None)
  Receive Date: 20110819
  Receipt Date: 20110808
  Transmission Date: 20111222
  Serious: Yes (Other)
  Sender: FDA-Public Use
  Company Number: PHHY2011IT72035

PATIENT
  Sex: Female

DRUGS (2)
  1. EXJADE [Suspect]
     Indication: CARDIAC SIDEROSIS
     Dosage: 5000 UG/KG, DAILY
     Route: 048
     Dates: start: 20091009, end: 20110520
  2. EXJADE [Suspect]
     Indication: HAEMOSIDEROSIS

REACTIONS (2)
  - MYOCLONUS [None]
  - PARAESTHESIA [None]
